FAERS Safety Report 8308739-2 (Version None)
Quarter: 2012Q1

REPORT INFORMATION
  Report Type: 
  Country: None (occurrence: None)
  Receive Date: 20120327
  Receipt Date: 20110317
  Transmission Date: 20120608
  Serious: Yes (Hospitalization)
  Sender: FDA-Public Use
  Company Number: PHHY2011US17997

PATIENT
  Age: 27 Year
  Sex: Male

DRUGS (1)
  1. GLEEVEC [Suspect]
     Indication: CHRONIC MYELOID LEUKAEMIA
     Dosage: 400 MG, DAILY, ORAL
     Route: 048
     Dates: start: 20090817, end: 20110302

REACTIONS (2)
  - BLAST CRISIS IN MYELOGENOUS LEUKAEMIA [None]
  - DRUG INEFFECTIVE [None]
